FAERS Safety Report 10086327 (Version 1)
Quarter: 2014Q2

REPORT INFORMATION
  Report Type: Spontaneous
  Country: US (occurrence: None)
  Receive Date: 20140417
  Receipt Date: 20140417
  Transmission Date: 20141212
  Serious: Yes (Other)
  Sender: FDA-Public Use
  Company Number: None

PATIENT
  Age: 66 Year
  Sex: Male
  Weight: 120.2 kg

DRUGS (1)
  1. MOXIFLOXACIN [Suspect]
     Indication: LUNG INFECTION
     Route: 048
     Dates: start: 20140228, end: 20140309

REACTIONS (2)
  - Tendonitis [None]
  - Myalgia [None]
